FAERS Safety Report 21272304 (Version 1)
Quarter: 2022Q3

REPORT INFORMATION
  Report Type: Spontaneous
  Country: US (occurrence: US)
  Receive Date: 20220830
  Receipt Date: 20220830
  Transmission Date: 20221026
  Serious: No
  Sender: FDA-Public Use
  Company Number: US-SEATTLE GENETICS-2022SGN05695

PATIENT

DRUGS (2)
  1. ADCETRIS [Suspect]
     Active Substance: BRENTUXIMAB VEDOTIN
     Indication: Product used for unknown indication
     Dosage: 240 MG
     Route: 065
     Dates: start: 20220519, end: 20220519
  2. ADCETRIS [Suspect]
     Active Substance: BRENTUXIMAB VEDOTIN
     Dosage: 120 MG
     Route: 065
     Dates: start: 20220609, end: 20220609

REACTIONS (1)
  - Infusion related reaction [Unknown]

NARRATIVE: CASE EVENT DATE: 20220519
